FAERS Safety Report 5190275-6 (Version None)
Quarter: 2006Q4

REPORT INFORMATION
  Report Type: 
  Country: None (occurrence: None)
  Receive Date: 20061222
  Receipt Date: 20060905
  Transmission Date: 20070319
  Serious: No
  Sender: FDA-Public Use
  Company Number: US-AMGEN-KDL192613

PATIENT
  Age: 50 Year
  Sex: Male
  Weight: 75 kg

DRUGS (2)
  1. PROCRIT [Suspect]
     Indication: RENAL FAILURE CHRONIC
     Route: 058
     Dates: start: 20050701, end: 20060201
  2. ARANESP [Suspect]
     Route: 058
     Dates: start: 20060201, end: 20060905

REACTIONS (1)
  - THERAPEUTIC RESPONSE DECREASED [None]
